FAERS Safety Report 9970028 (Version 1)
Quarter: 2014Q1

REPORT INFORMATION
  Report Type: Spontaneous
  Country: JP (occurrence: None)
  Receive Date: 20140304
  Receipt Date: 20140304
  Transmission Date: 20141002
  Serious: Yes (Other)
  Sender: FDA-Public Use
  Company Number: VAL_03007_2014

PATIENT
  Sex: Male

DRUGS (1)
  1. PARLODEL [Suspect]
     Indication: PARKINSON^S DISEASE
     Dosage: (DF ORAL)
     Route: 048

REACTIONS (3)
  - Dysphagia [None]
  - Parkinson^s disease [None]
  - Disease progression [None]
